FAERS Safety Report 5922637-0 (Version None)
Quarter: 2008Q3

REPORT INFORMATION
  Report Type: 
  Country: None (occurrence: None)
  Receive Date: 20080924
  Receipt Date: 20080912
  Transmission Date: 20090109
  Serious: Yes (Hospitalization)
  Sender: FDA-Public Use
  Company Number: WSDF_00739

PATIENT
  Age: 20 Year
  Sex: Male

DRUGS (9)
  1. WINRHO SDF [Suspect]
     Indication: IDIOPATHIC THROMBOCYTOPENIC PURPURA
     Dosage: 75 UG/KG ONCE IV
     Route: 042
     Dates: start: 20080305, end: 20080305
  2. DEXTROMETHORPHAN [Concomitant]
  3. GUAIFENESIN [Concomitant]
  4. CORICIDIN [Concomitant]
  5. TYLENOL [Concomitant]
  6. BENADRYL ^PFIZER WARNER-LAMBERT^ [Concomitant]
  7. NUBAIN [Concomitant]
  8. ZOFRAN [Concomitant]
  9. CEFTRIAXONE [Concomitant]

REACTIONS (29)
  - ACTIVATED PARTIAL THROMBOPLASTIN TIME PROLONGED [None]
  - ASPARTATE AMINOTRANSFERASE INCREASED [None]
  - BLOOD ALKALINE PHOSPHATASE INCREASED [None]
  - BLOOD BILIRUBIN INCREASED [None]
  - BLOOD CHLORIDE DECREASED [None]
  - BLOOD LACTATE DEHYDROGENASE INCREASED [None]
  - BLOOD SODIUM DECREASED [None]
  - BLOOD URIC ACID INCREASED [None]
  - CONTUSION [None]
  - HAEMODIALYSIS [None]
  - HEADACHE [None]
  - HYPOMAGNESAEMIA [None]
  - IDIOPATHIC THROMBOCYTOPENIC PURPURA [None]
  - INCREASED UPPER AIRWAY SECRETION [None]
  - INFLUENZA [None]
  - LEUKOCYTOSIS [None]
  - NAUSEA [None]
  - OROPHARYNGEAL PAIN [None]
  - PAIN IN EXTREMITY [None]
  - PANCREATITIS [None]
  - PETECHIAE [None]
  - PLATELET COUNT DECREASED [None]
  - POSTNASAL DRIP [None]
  - PRODUCTIVE COUGH [None]
  - PYREXIA [None]
  - RENAL FAILURE ACUTE [None]
  - THROMBOCYTOPENIA [None]
  - UPPER RESPIRATORY TRACT INFECTION [None]
  - WHITE BLOOD CELL COUNT INCREASED [None]
